FAERS Safety Report 23965961 (Version 3)
Quarter: 2025Q1

REPORT INFORMATION
  Report Type: Spontaneous
  Country: US (occurrence: US)
  Receive Date: 20240612
  Receipt Date: 20250324
  Transmission Date: 20250409
  Serious: No
  Sender: AMGEN
  Company Number: US-AMGEN-USASP2024109750

PATIENT
  Age: 65 Year
  Sex: Female

DRUGS (2)
  1. AIMOVIG [Suspect]
     Active Substance: ERENUMAB-AOOE
     Indication: Headache
     Dosage: 140 MILLIGRAM, QMO
     Route: 058
  2. AIMOVIG [Suspect]
     Active Substance: ERENUMAB-AOOE
     Indication: Off label use

REACTIONS (17)
  - Headache [Unknown]
  - Hypoacusis [Unknown]
  - Speech disorder [Unknown]
  - Eye disorder [Unknown]
  - Oropharyngeal discomfort [Unknown]
  - Cerebral disorder [Unknown]
  - Dry mouth [Unknown]
  - Insomnia [Unknown]
  - Arthralgia [Unknown]
  - Limb discomfort [Unknown]
  - Gait disturbance [Unknown]
  - Memory impairment [Unknown]
  - Confusional state [Unknown]
  - Pain [Unknown]
  - Drug dose omission by device [Unknown]
  - Device difficult to use [Unknown]
  - Off label use [Unknown]
